FAERS Safety Report 6701241-0 (Version None)
Quarter: 2010Q2

REPORT INFORMATION
  Report Type: 
  Country: None (occurrence: None)
  Receive Date: 20100427
  Receipt Date: 20100419
  Transmission Date: 20101027
  Serious: Yes (Other)
  Sender: FDA-Public Use
  Company Number: 1000011767

PATIENT
  Age: 82 Year
  Sex: Male
  Weight: 78 kg

DRUGS (8)
  1. MEMANTINE HCL [Suspect]
     Indication: ABNORMAL BEHAVIOUR
     Dosage: ORAL
     Route: 048
     Dates: start: 20091022
  2. MEMANTINE HCL [Suspect]
     Indication: DEMENTIA
     Dosage: ORAL
     Route: 048
     Dates: start: 20091022
  3. MEMANTINE HCL [Suspect]
     Indication: ABNORMAL BEHAVIOUR
     Dosage: 20 MG, ORAL
     Route: 048
     Dates: end: 20100106
  4. MEMANTINE HCL [Suspect]
     Indication: DEMENTIA
     Dosage: 20 MG, ORAL
     Route: 048
     Dates: end: 20100106
  5. IRBESARTAN [Concomitant]
  6. OMEPRAZOLE [Concomitant]
  7. KARDEGIC [Concomitant]
  8. REMINYL [Concomitant]

REACTIONS (1)
  - PHLEBITIS [None]
